FAERS Safety Report 8925694 (Version 2)
Quarter: 2013Q2

REPORT INFORMATION
  Report Type: Spontaneous
  Country: MX (occurrence: MX)
  Receive Date: 20121126
  Receipt Date: 20130418
  Transmission Date: 20140414
  Serious: Yes (Hospitalization)
  Sender: FDA-Public Use
  Company Number: MX-ABBOTT-12P-107-0934907-00

PATIENT
  Age: 52 Year
  Sex: Male
  Weight: 108 kg

DRUGS (7)
  1. HUMIRA 40 MG/ 0.8 ML PRE-FILLED SYRINGE [Suspect]
     Indication: ANKYLOSING SPONDYLITIS
     Route: 058
     Dates: start: 20120426, end: 20120802
  2. LIBERTRIM [Concomitant]
     Indication: ANKYLOSING SPONDYLITIS
     Dosage: 1 TABLET WITH EVERY MEAL
     Route: 048
     Dates: start: 201111
  3. FOLIC ACID [Concomitant]
     Indication: ANKYLOSING SPONDYLITIS
     Dosage: DAILY
     Route: 048
     Dates: start: 201108
  4. BENERVA [Concomitant]
     Indication: ANKYLOSING SPONDYLITIS
     Dosage: DAILY
     Route: 048
     Dates: start: 201201
  5. AZULFIN [Concomitant]
     Indication: ANKYLOSING SPONDYLITIS
     Route: 048
     Dates: start: 201106
  6. VALIFOL [Concomitant]
     Indication: ANKYLOSING SPONDYLITIS
     Dosage: 200MG MORNING AND 100MG NIGHT
     Route: 048
     Dates: start: 201201
  7. TRIXILEM [Concomitant]
     Indication: ANKYLOSING SPONDYLITIS
     Dosage: EVERY WEEK
     Route: 048
     Dates: start: 201109

REACTIONS (9)
  - Pneumonia [Recovered/Resolved]
  - Epistaxis [Recovered/Resolved]
  - Muscle rigidity [Recovered/Resolved]
  - Uveitis [Recovered/Resolved]
  - Headache [Recovered/Resolved]
  - Tremor [Recovered/Resolved]
  - Constipation [Recovered/Resolved]
  - Anxiety [Not Recovered/Not Resolved]
  - Gingival swelling [Recovered/Resolved]
